FAERS Safety Report 7778370-6 (Version None)
Quarter: 2011Q3

REPORT INFORMATION
  Report Type: 
  Country: None (occurrence: None)
  Receive Date: 20110926
  Receipt Date: 20110922
  Transmission Date: 20111222
  Serious: Yes (Hospitalization)
  Sender: FDA-Public Use
  Company Number: US-GLAXOSMITHKLINE-A0759020A

PATIENT
  Age: 42 Year
  Sex: Male
  Weight: 81.8 kg

DRUGS (7)
  1. AMARYL [Concomitant]
  2. ALTACE [Concomitant]
  3. AVANDIA [Suspect]
     Indication: TYPE 2 DIABETES MELLITUS
     Dosage: 8MG PER DAY
     Route: 048
     Dates: start: 20030101, end: 20070101
  4. REGULAR INSULIN [Concomitant]
     Dates: start: 20040101
  5. METOPROLOL TARTRATE [Concomitant]
  6. PRAVACHOL [Concomitant]
  7. LOPID [Concomitant]

REACTIONS (2)
  - MYOCARDIAL INFARCTION [None]
  - CORONARY ARTERY DISEASE [None]
